FAERS Safety Report 7302669-0 (Version None)
Quarter: 2011Q1

REPORT INFORMATION
  Report Type: 
  Country: None (occurrence: None)
  Receive Date: 20110218
  Receipt Date: 20110214
  Transmission Date: 20110831
  Serious: Yes (Other)
  Sender: FDA-Public Use
  Company Number: US-US-EMD SERONO, INC.-7041003

PATIENT
  Sex: Female
  Weight: 82 kg

DRUGS (7)
  1. REBIF [Suspect]
     Route: 058
     Dates: start: 20080715, end: 20091001
  2. PROVIGIL [Concomitant]
     Indication: HYPERSOMNIA
     Dates: start: 20070820, end: 20080814
  3. UNSPECIFIED CHOLESTEROL PILL [Concomitant]
     Indication: BLOOD CHOLESTEROL INCREASED
  4. REBIF [Suspect]
     Indication: MULTIPLE SCLEROSIS
     Route: 058
     Dates: start: 20080626, end: 20080701
  5. UNSPECIFIED BLOOD PRESSURE MEDICATION [Concomitant]
     Indication: HYPERTENSION
  6. WATER PILL [Concomitant]
     Dates: end: 20090601
  7. UNSPECIFIED MEDICATION [Concomitant]
     Indication: HYPERTHYROIDISM

REACTIONS (8)
  - THYROID DISORDER [None]
  - RENAL FAILURE [None]
  - AORTIC VALVE INCOMPETENCE [None]
  - TRICUSPID VALVE INCOMPETENCE [None]
  - BLOOD CHOLESTEROL INCREASED [None]
  - TYPE 2 DIABETES MELLITUS [None]
  - HYPERTENSION [None]
  - ARTERIAL OCCLUSIVE DISEASE [None]
